FAERS Safety Report 13123559 (Version 1)
Quarter: 2017Q1

REPORT INFORMATION
  Report Type: Spontaneous
  Country: US (occurrence: US)
  Receive Date: 20170117
  Receipt Date: 20170117
  Transmission Date: 20170428
  Serious: Yes (Hospitalization, Other)
  Sender: FDA-Public Use
  Company Number: US-TARO-2016TAR00986

PATIENT
  Age: 47 Year
  Sex: Female
  Weight: 131.52 kg

DRUGS (5)
  1. ETODOLAC TABLETS 500 MG [Suspect]
     Active Substance: ETODOLAC
     Indication: ARTHRALGIA
     Dosage: 500 MG, 1X/DAY
     Route: 048
     Dates: start: 201611, end: 201611
  2. WELLBUTRIN [Concomitant]
     Active Substance: BUPROPION HYDROCHLORIDE
     Dosage: UNK, 1X/DAY
  3. ZOLOFT [Concomitant]
     Active Substance: SERTRALINE HYDROCHLORIDE
     Dosage: UNK, 1X/DAY
  4. ETODOLAC TABLETS 500 MG [Suspect]
     Active Substance: ETODOLAC
     Dosage: AT LEAST 2 TABLETS
     Route: 048
     Dates: start: 201611, end: 20161113
  5. XANAX [Concomitant]
     Active Substance: ALPRAZOLAM
     Dosage: UNK, 1X/DAY

REACTIONS (6)
  - Haemorrhoids [Unknown]
  - Gastritis [Unknown]
  - Colitis [Recovering/Resolving]
  - Duodenitis [None]
  - Erosive oesophagitis [Unknown]
  - Functional gastrointestinal disorder [Unknown]

NARRATIVE: CASE EVENT DATE: 20161112
